FAERS Safety Report 20882959 (Version 3)
Quarter: 2022Q4

REPORT INFORMATION
  Report Type: Spontaneous
  Country: US (occurrence: US)
  Receive Date: 20220527
  Receipt Date: 20221115
  Transmission Date: 20230112
  Serious: Yes (Other)
  Sender: FDA-Public Use
  Company Number: US-BRISTOL-MYERS SQUIBB COMPANY-2022-041852

PATIENT
  Age: 80 Year
  Sex: Male

DRUGS (3)
  1. REVLIMID [Suspect]
     Active Substance: LENALIDOMIDE
     Indication: Plasma cell myeloma
     Dosage: FREQ:1 CAPSULE BY MOUTH WHOLE WITH WATER, WITH OR WITHOUT FOOD, DAILY ON DAYS 1-2 OF EACH 28 DAY CYC
     Route: 048
     Dates: start: 20211105
  2. REVLIMID [Suspect]
     Active Substance: LENALIDOMIDE
     Route: 048
     Dates: start: 20211011
  3. REVLIMID [Suspect]
     Active Substance: LENALIDOMIDE
     Dosage: TAKE 1 CAPSULE BY MOUTH WHOLE WITH WATER WITH OR WITHOUT FOOD EVERY DAY ON DAYS 1-21 OF EACH 28 DAY
     Route: 048
     Dates: start: 20211105

REACTIONS (2)
  - Neutropenia [Unknown]
  - White blood cell count decreased [Unknown]
